FAERS Safety Report 25639086 (Version 1)
Quarter: 2025Q3

REPORT INFORMATION
  Report Type: Spontaneous
  Country: US (occurrence: US)
  Receive Date: 20250804
  Receipt Date: 20250804
  Transmission Date: 20251021
  Serious: Yes (Disabling, Other)
  Sender: MYLAN
  Company Number: US-MYLANLABS-2025M1064361

PATIENT
  Age: 73 Year
  Sex: Male

DRUGS (48)
  1. AMLODIPINE [Suspect]
     Active Substance: AMLODIPINE BESYLATE
     Indication: Hypertension
     Route: 065
  2. AMLODIPINE [Suspect]
     Active Substance: AMLODIPINE BESYLATE
  3. AMLODIPINE [Suspect]
     Active Substance: AMLODIPINE BESYLATE
  4. AMLODIPINE [Suspect]
     Active Substance: AMLODIPINE BESYLATE
     Route: 065
  5. AMLODIPINE [Suspect]
     Active Substance: AMLODIPINE BESYLATE
     Route: 065
  6. AMLODIPINE [Suspect]
     Active Substance: AMLODIPINE BESYLATE
  7. AMLODIPINE [Suspect]
     Active Substance: AMLODIPINE BESYLATE
  8. AMLODIPINE [Suspect]
     Active Substance: AMLODIPINE BESYLATE
     Route: 065
  9. CARVEDILOL [Suspect]
     Active Substance: CARVEDILOL
     Indication: Hypertension
     Route: 065
  10. CARVEDILOL [Suspect]
     Active Substance: CARVEDILOL
  11. CARVEDILOL [Suspect]
     Active Substance: CARVEDILOL
  12. CARVEDILOL [Suspect]
     Active Substance: CARVEDILOL
     Route: 065
  13. CARVEDILOL [Suspect]
     Active Substance: CARVEDILOL
     Route: 065
  14. CARVEDILOL [Suspect]
     Active Substance: CARVEDILOL
  15. CARVEDILOL [Suspect]
     Active Substance: CARVEDILOL
  16. CARVEDILOL [Suspect]
     Active Substance: CARVEDILOL
     Route: 065
  17. HYDROCHLOROTHIAZIDE [Suspect]
     Active Substance: HYDROCHLOROTHIAZIDE
     Indication: Hypertension
     Route: 065
  18. HYDROCHLOROTHIAZIDE [Suspect]
     Active Substance: HYDROCHLOROTHIAZIDE
  19. HYDROCHLOROTHIAZIDE [Suspect]
     Active Substance: HYDROCHLOROTHIAZIDE
  20. HYDROCHLOROTHIAZIDE [Suspect]
     Active Substance: HYDROCHLOROTHIAZIDE
     Route: 065
  21. HYDROCHLOROTHIAZIDE [Suspect]
     Active Substance: HYDROCHLOROTHIAZIDE
     Route: 065
  22. HYDROCHLOROTHIAZIDE [Suspect]
     Active Substance: HYDROCHLOROTHIAZIDE
  23. HYDROCHLOROTHIAZIDE [Suspect]
     Active Substance: HYDROCHLOROTHIAZIDE
  24. HYDROCHLOROTHIAZIDE [Suspect]
     Active Substance: HYDROCHLOROTHIAZIDE
     Route: 065
  25. PREDNISONE [Suspect]
     Active Substance: PREDNISONE
     Indication: Optic ischaemic neuropathy
  26. PREDNISONE [Suspect]
     Active Substance: PREDNISONE
     Route: 048
  27. PREDNISONE [Suspect]
     Active Substance: PREDNISONE
     Route: 048
  28. PREDNISONE [Suspect]
     Active Substance: PREDNISONE
  29. OZEMPIC [Suspect]
     Active Substance: SEMAGLUTIDE
     Indication: Obesity
     Dosage: 0.25 MILLIGRAM, QW (2MG/1.5ML)
     Route: 065
     Dates: start: 202304
  30. OZEMPIC [Suspect]
     Active Substance: SEMAGLUTIDE
     Dosage: 0.25 MILLIGRAM, QW (2MG/1.5ML)
     Dates: start: 202304
  31. OZEMPIC [Suspect]
     Active Substance: SEMAGLUTIDE
     Dosage: 0.25 MILLIGRAM, QW (2MG/1.5ML)
     Dates: start: 202304
  32. OZEMPIC [Suspect]
     Active Substance: SEMAGLUTIDE
     Dosage: 0.25 MILLIGRAM, QW (2MG/1.5ML)
     Route: 065
     Dates: start: 202304
  33. OZEMPIC [Suspect]
     Active Substance: SEMAGLUTIDE
     Dosage: 0.5 MILLIGRAM, QW (2MG/1.5ML)
     Route: 065
     Dates: start: 202305
  34. OZEMPIC [Suspect]
     Active Substance: SEMAGLUTIDE
     Dosage: 0.5 MILLIGRAM, QW (2MG/1.5ML)
     Dates: start: 202305
  35. OZEMPIC [Suspect]
     Active Substance: SEMAGLUTIDE
     Dosage: 0.5 MILLIGRAM, QW (2MG/1.5ML)
     Dates: start: 202305
  36. OZEMPIC [Suspect]
     Active Substance: SEMAGLUTIDE
     Dosage: 0.5 MILLIGRAM, QW (2MG/1.5ML)
     Route: 065
     Dates: start: 202305
  37. OZEMPIC [Suspect]
     Active Substance: SEMAGLUTIDE
     Dosage: 1 MILLIGRAM, QW (4MG/3MM)
     Dates: start: 202306, end: 202309
  38. OZEMPIC [Suspect]
     Active Substance: SEMAGLUTIDE
     Dosage: 1 MILLIGRAM, QW (4MG/3MM)
     Dates: start: 202306, end: 202309
  39. OZEMPIC [Suspect]
     Active Substance: SEMAGLUTIDE
     Dosage: 1 MILLIGRAM, QW (4MG/3MM)
     Route: 065
     Dates: start: 202306, end: 202309
  40. OZEMPIC [Suspect]
     Active Substance: SEMAGLUTIDE
     Dosage: 1 MILLIGRAM, QW (4MG/3MM)
     Route: 065
     Dates: start: 202306, end: 202309
  41. OZEMPIC [Suspect]
     Active Substance: SEMAGLUTIDE
     Dosage: 2 MILLIGRAM, QW (8MG/3MM)
     Dates: start: 202310
  42. OZEMPIC [Suspect]
     Active Substance: SEMAGLUTIDE
     Dosage: 2 MILLIGRAM, QW (8MG/3MM)
     Dates: start: 202310
  43. OZEMPIC [Suspect]
     Active Substance: SEMAGLUTIDE
     Dosage: 2 MILLIGRAM, QW (8MG/3MM)
     Route: 065
     Dates: start: 202310
  44. OZEMPIC [Suspect]
     Active Substance: SEMAGLUTIDE
     Dosage: 2 MILLIGRAM, QW (8MG/3MM)
     Route: 065
     Dates: start: 202310
  45. ASPIRIN [Concomitant]
     Active Substance: ASPIRIN
     Indication: Product used for unknown indication
  46. ASPIRIN [Concomitant]
     Active Substance: ASPIRIN
     Route: 065
  47. ASPIRIN [Concomitant]
     Active Substance: ASPIRIN
     Route: 065
  48. ASPIRIN [Concomitant]
     Active Substance: ASPIRIN

REACTIONS (3)
  - Orthostatic hypotension [Recovering/Resolving]
  - Drug ineffective for unapproved indication [Unknown]
  - Off label use [Unknown]
